FAERS Safety Report 23467868 (Version 2)
Quarter: 2024Q1

REPORT INFORMATION
  Report Type: Spontaneous
  Country: US (occurrence: US)
  Receive Date: 20240201
  Receipt Date: 20240206
  Transmission Date: 20240410
  Serious: No
  Sender: FDA-Public Use
  Company Number: US-JNJFOC-20240134981

PATIENT
  Sex: Male

DRUGS (1)
  1. ZYRTEC [Suspect]
     Active Substance: CETIRIZINE HYDROCHLORIDE
     Indication: Product used for unknown indication
     Dosage: 1 CAPLET AND ANOTHER 1 CAPLET FOR 20 MINUTES
     Route: 065

REACTIONS (3)
  - Accidental overdose [Unknown]
  - Expired product administered [Unknown]
  - Inappropriate schedule of product administration [Unknown]
